FAERS Safety Report 25823519 (Version 1)
Quarter: 2025Q3

REPORT INFORMATION
  Report Type: Spontaneous
  Country: CN (occurrence: CN)
  Receive Date: 20250919
  Receipt Date: 20250919
  Transmission Date: 20251021
  Serious: Yes (Other)
  Sender: ROCHE
  Company Number: CN-ROCHE-10000384032

PATIENT
  Age: 72 Year
  Sex: Male

DRUGS (21)
  1. TOCILIZUMAB [Suspect]
     Active Substance: TOCILIZUMAB
     Indication: Rheumatoid arthritis
     Route: 065
     Dates: start: 202412
  2. TOCILIZUMAB [Suspect]
     Active Substance: TOCILIZUMAB
     Route: 065
     Dates: start: 202502
  3. TOCILIZUMAB [Suspect]
     Active Substance: TOCILIZUMAB
     Route: 065
     Dates: start: 202503
  4. TOCILIZUMAB [Suspect]
     Active Substance: TOCILIZUMAB
     Route: 065
     Dates: start: 202505
  5. TOCILIZUMAB [Suspect]
     Active Substance: TOCILIZUMAB
     Route: 065
     Dates: start: 202504
  6. TOCILIZUMAB [Suspect]
     Active Substance: TOCILIZUMAB
     Route: 065
     Dates: start: 202506
  7. TOCILIZUMAB [Suspect]
     Active Substance: TOCILIZUMAB
     Route: 065
     Dates: start: 202507
  8. TOCILIZUMAB [Suspect]
     Active Substance: TOCILIZUMAB
     Route: 065
     Dates: start: 202411
  9. METHOTREXATE [Concomitant]
     Active Substance: METHOTREXATE
     Route: 048
  10. Lei Gong Teng Duo Gan Pian [Concomitant]
     Route: 048
  11. Lei Gong Teng Duo Gan Pian [Concomitant]
  12. PREDNISONE [Concomitant]
     Active Substance: PREDNISONE
     Indication: Inflammation
     Route: 048
  13. PREDNISONE [Concomitant]
     Active Substance: PREDNISONE
  14. LEFLUNOMIDE [Concomitant]
     Active Substance: LEFLUNOMIDE
     Route: 048
  15. VALSARTAN [Concomitant]
     Active Substance: VALSARTAN
     Indication: Hypertension
  16. AMLODIPINE [Concomitant]
     Active Substance: AMLODIPINE BESYLATE
     Indication: Hypertension
  17. RIVAROXABAN [Concomitant]
     Active Substance: RIVAROXABAN
  18. AMIODARONE [Concomitant]
     Active Substance: AMIODARONE
  19. HERBALS [Concomitant]
     Active Substance: HERBALS
  20. IGURATIMOD [Concomitant]
     Active Substance: IGURATIMOD
     Route: 048
  21. TOFACITINIB [Concomitant]
     Active Substance: TOFACITINIB

REACTIONS (4)
  - Myelosuppression [Unknown]
  - Renal impairment [Recovering/Resolving]
  - Hepatic failure [Unknown]
  - Blood creatinine increased [Unknown]
